FAERS Safety Report 5757836-4 (Version None)
Quarter: 2008Q2

REPORT INFORMATION
  Report Type: 
  Country: None (occurrence: None)
  Receive Date: 20080603
  Receipt Date: 20080526
  Transmission Date: 20081010
  Serious: Yes (Hospitalization, Disabling)
  Sender: FDA-Public Use
  Company Number: PHHO2008IT02388

PATIENT
  Sex: Male
  Weight: 60 kg

DRUGS (10)
  1. AMN107 AMN+CAP [Suspect]
     Indication: CHRONIC MYELOID LEUKAEMIA
     Dosage: 400MG DAILY
     Route: 048
     Dates: start: 20070411, end: 20070502
  2. AMN107 AMN+CAP [Suspect]
     Dosage: NO TREATMENT
     Dates: start: 20070503, end: 20070510
  3. AMN107 AMN+CAP [Suspect]
     Dosage: 400MG DAILY
     Route: 048
     Dates: start: 20070511, end: 20070516
  4. AMN107 AMN+CAP [Suspect]
     Dosage: 400MG DAILY
     Route: 048
     Dates: end: 20080406
  5. AMN107 AMN+CAP [Suspect]
     Dosage: NO TREATMENT
  6. ZANTAC [Concomitant]
  7. ATRA [Concomitant]
  8. LEVOXACIN [Concomitant]
  9. LANSOX [Concomitant]
     Indication: GASTRITIS PROPHYLAXIS
  10. AMIODARONE HCL [Concomitant]

REACTIONS (8)
  - ANGIOPLASTY [None]
  - ARTERIAL STENOSIS [None]
  - ARTERIOSCLEROSIS [None]
  - DISEASE PROGRESSION [None]
  - INTERMITTENT CLAUDICATION [None]
  - PAIN IN EXTREMITY [None]
  - PARAESTHESIA [None]
  - STENT PLACEMENT [None]
